FAERS Safety Report 19358669 (Version 2)
Quarter: 2021Q2

REPORT INFORMATION
  Report Type: Spontaneous
  Country: JP (occurrence: JP)
  Receive Date: 20210601
  Receipt Date: 20210602
  Transmission Date: 20210717
  Serious: Yes (Other)
  Sender: FDA-Public Use
  Company Number: JP-DSJP-DSJ-2021-115796

PATIENT
  Age: 75 Year
  Sex: Male
  Weight: 45 kg

DRUGS (5)
  1. OLMETEC OD [Suspect]
     Active Substance: OLMESARTAN MEDOXOMIL
     Indication: HYPERTENSION
     Dosage: 5MG/DAY
     Route: 048
  2. ARTIST [Suspect]
     Active Substance: CARVEDILOL
     Indication: PRODUCT USED FOR UNKNOWN INDICATION
     Dosage: 10MG/DAY
     Route: 048
  3. FUROSEMIDE. [Concomitant]
     Active Substance: FUROSEMIDE
     Dosage: 60MG/DAY
     Route: 048
  4. WARFARIN                           /00014803/ [Suspect]
     Active Substance: WARFARIN
     Dosage: 1.5MG/DAY
     Route: 048
  5. WARFARIN                           /00014803/ [Suspect]
     Active Substance: WARFARIN
     Dosage: 1.5MG/DAY
     Route: 048

REACTIONS (6)
  - Infection [Unknown]
  - Peripheral artery occlusion [Unknown]
  - Aspiration [Unknown]
  - Respiratory failure [Unknown]
  - Bleeding time prolonged [Unknown]
  - Postoperative renal failure [Unknown]
